FAERS Safety Report 8450180-6 (Version None)
Quarter: 2012Q2

REPORT INFORMATION
  Report Type: 
  Country: None (occurrence: None)
  Receive Date: 20120614
  Receipt Date: 20120614
  Transmission Date: 20120825
  Serious: No
  Sender: FDA-Public Use
  Company Number: None

PATIENT
  Age: 50 Year
  Sex: Female
  Weight: 61.2356 kg

DRUGS (1)
  1. KEFLEX [Suspect]
     Indication: EAR LOBE INFECTION
     Dosage: 1 CAPSULE
     Dates: start: 20120611, end: 20120611

REACTIONS (11)
  - HEADACHE [None]
  - ARTHRALGIA [None]
  - VOMITING [None]
  - DIARRHOEA [None]
  - ABDOMINAL PAIN [None]
  - PAIN IN JAW [None]
  - SPINAL PAIN [None]
  - BURNING SENSATION [None]
  - NECK PAIN [None]
  - FEELING ABNORMAL [None]
  - NAUSEA [None]
